FAERS Safety Report 17704412 (Version 1)
Quarter: 2020Q2

REPORT INFORMATION
  Report Type: Spontaneous
  Country: US (occurrence: US)
  Receive Date: 20200424
  Receipt Date: 20200424
  Transmission Date: 20200714
  Serious: Yes (Hospitalization)
  Sender: FDA-Public Use
  Company Number: None

PATIENT
  Age: 40 Year
  Sex: Female

DRUGS (5)
  1. CIMZIA [Suspect]
     Active Substance: CERTOLIZUMAB PEGOL
     Indication: CROHN^S DISEASE
     Dosage: FREQUENCY: Q2WEEKS
     Route: 058
     Dates: start: 20160729
  2. PREDNISONE. [Concomitant]
     Active Substance: PREDNISONE
  3. MESALAMINE. [Concomitant]
     Active Substance: MESALAMINE
  4. TRISPRINTEC [Concomitant]
     Active Substance: ETHINYL ESTRADIOL\NORGESTIMATE
  5. PREDNISONE. [Concomitant]
     Active Substance: PREDNISONE

REACTIONS (2)
  - Weight decreased [None]
  - Condition aggravated [None]
